FAERS Safety Report 9534237 (Version 1)
Quarter: 2013Q3

REPORT INFORMATION
  Report Type: Spontaneous
  Country: CA (occurrence: CA)
  Receive Date: 20130918
  Receipt Date: 20130918
  Transmission Date: 20140515
  Serious: Yes (Hospitalization, Other)
  Sender: FDA-Public Use
  Company Number: CA-GLAXOSMITHKLINE-A1027761A

PATIENT
  Sex: Male

DRUGS (1)
  1. VOTRIENT [Suspect]
     Indication: RENAL CANCER METASTATIC
     Dosage: 800MG PER DAY
     Route: 065
     Dates: start: 20130607, end: 20130826

REACTIONS (4)
  - Fatigue [Unknown]
  - Muscular weakness [Unknown]
  - Abdominal discomfort [Unknown]
  - Hip fracture [Unknown]
